FAERS Safety Report 8301958-0 (Version None)
Quarter: 2012Q2

REPORT INFORMATION
  Report Type: 
  Country: None (occurrence: None)
  Receive Date: 20120402
  Receipt Date: 20120323
  Transmission Date: 20120825
  Serious: Yes (Other)
  Sender: FDA-Public Use
  Company Number: 2012031742

PATIENT
  Sex: Male

DRUGS (1)
  1. ALBURX [Suspect]
     Dosage: SEE IMAGE
     Route: 042

REACTIONS (2)
  - INCORRECT DOSE ADMINISTERED [None]
  - RENAL IMPAIRMENT [None]
